FAERS Safety Report 7382372-1 (Version None)
Quarter: 2011Q1

REPORT INFORMATION
  Report Type: 
  Country: None (occurrence: None)
  Receive Date: 20110329
  Receipt Date: 20110302
  Transmission Date: 20110831
  Serious: Yes (Hospitalization, Other)
  Sender: FDA-Public Use
  Company Number: US-BAYER-201029567NA

PATIENT
  Sex: Female
  Weight: 53.061 kg

DRUGS (29)
  1. FLUCONAZOLE [Concomitant]
     Dosage: 150 MG, UNK
  2. TERCONAZOLE [Concomitant]
     Dosage: 0.8 %, UNK
  3. PROMETHAZINE [Concomitant]
     Dosage: 25 MG, UNK
  4. KETOCONAZOLE [Concomitant]
     Dosage: 2 %, UNK
  5. HYDROCODONE BITARTRATE AND ACETAMINOPHEN [Concomitant]
  6. VITAMIN D [Concomitant]
     Dosage: UNK UNK, BIW
  7. FLUTICASONE PROPIONATE [Concomitant]
  8. ZOLOFT [Concomitant]
     Dosage: UNK UNK, QD
     Route: 048
  9. UNCODEABLE ^UNCLASSIFIABLE^ [Concomitant]
     Dosage: 400 MG, UNK
     Route: 048
  10. YASMIN [Suspect]
     Indication: PRODUCT USED FOR UNKNOWN INDICATION
     Dosage: UNK UNK, QD
     Route: 048
     Dates: start: 20050101, end: 20080701
  11. PROPOXYPHENE NAPSYLATE W/ ACETAMINOPHEN [Concomitant]
  12. CIPROFLOXACIN [Concomitant]
     Dosage: 500 MG, UNK
  13. PENICILLIN VK [Concomitant]
     Dosage: 250 MG, UNK
  14. AMBIEN CR [Concomitant]
     Dosage: 12.5 MG, UNK
  15. UNCODEABLE ^UNCLASSIFIABLE^ [Concomitant]
     Dosage: UNK UNK, BID
  16. ERY-TAB [Concomitant]
     Dosage: 250 MG, UNK
  17. LEXAPRO [Concomitant]
     Dosage: 100 MG, UNK
     Route: 048
  18. SERTRALINE [Concomitant]
     Dosage: 50 MG, UNK
  19. WARFARIN [Concomitant]
     Dosage: 5 MG, UNK
  20. SULFAMETHOXAZOLE AND TRIMETHOPRIM [Concomitant]
  21. NAPROXEN [Concomitant]
     Dosage: 500 MG, UNK
  22. NYSTATIN [Concomitant]
  23. ALBUTEROL [Concomitant]
     Dosage: 90 UNK, UNK
  24. TRIAMCINOLONE [Concomitant]
     Dosage: 0.1 %, UNK
  25. BACLOFEN [Concomitant]
     Dosage: 100 MG, PRN
     Route: 048
  26. CEPHALEXIN [Concomitant]
     Dosage: 500 MG, UNK
  27. AZITHROMYCIN [Concomitant]
     Dosage: 500 MG, UNK
  28. TRAZODONE [Concomitant]
     Dosage: 100 MG, UNK
  29. AMITRIPTYLINE [Concomitant]
     Dosage: 10 MG, BID

REACTIONS (3)
  - CEREBROVASCULAR ACCIDENT [None]
  - ARTERY DISSECTION [None]
  - TRANSIENT ISCHAEMIC ATTACK [None]
